FAERS Safety Report 8396179-X (Version None)
Quarter: 2012Q2

REPORT INFORMATION
  Report Type: 
  Country: None (occurrence: None)
  Receive Date: 20120530
  Receipt Date: 20111128
  Transmission Date: 20120825
  Serious: Yes (Hospitalization)
  Sender: FDA-Public Use
  Company Number: FR-GLAXOSMITHKLINE-B0766305A

PATIENT
  Age: 69 Year
  Sex: Female
  Weight: 38 kg

DRUGS (4)
  1. MORPHINE SULFATE [Concomitant]
  2. LAPATINIB [Suspect]
     Indication: BREAST CANCER METASTATIC
     Dosage: 1000MG PER DAY
     Route: 048
     Dates: start: 20110801, end: 20120425
  3. HERCEPTIN [Concomitant]
     Indication: BREAST CANCER METASTATIC
     Dosage: 6MGK PER DAY
     Dates: start: 20110118, end: 20120425
  4. ZOMETA [Concomitant]

REACTIONS (3)
  - DRUG ADMINISTRATION ERROR [None]
  - GENERAL PHYSICAL HEALTH DETERIORATION [None]
  - DISEASE PROGRESSION [None]
